FAERS Safety Report 6423382-8 (Version None)
Quarter: 2009Q4

REPORT INFORMATION
  Report Type: 
  Country: None (occurrence: None)
  Receive Date: 20091102
  Receipt Date: 20091028
  Transmission Date: 20100525
  Serious: Yes (Other)
  Sender: FDA-Public Use
  Company Number: A0803772A

PATIENT
  Age: 18 Year
  Sex: Female
  Weight: 49.5 kg

DRUGS (2)
  1. LAMICTAL [Suspect]
     Indication: BIPOLAR DISORDER
     Dosage: 50MG PER DAY
     Route: 048
     Dates: start: 20090609, end: 20090820
  2. PROZAC [Concomitant]
     Indication: DEPRESSION
     Dosage: 30MG PER DAY
     Route: 048
     Dates: start: 20041101

REACTIONS (11)
  - ABDOMINAL PAIN UPPER [None]
  - ADVERSE DRUG REACTION [None]
  - BLOOD BLISTER [None]
  - DIZZINESS [None]
  - DRUG HYPERSENSITIVITY [None]
  - NAUSEA [None]
  - RASH [None]
  - RASH PRURITIC [None]
  - RASH VESICULAR [None]
  - SCRATCH [None]
  - VOMITING [None]
